FAERS Safety Report 16531137 (Version 1)
Quarter: 2019Q3

REPORT INFORMATION
  Report Type: Spontaneous
  Country: GB (occurrence: GB)
  Receive Date: 20190704
  Receipt Date: 20190704
  Transmission Date: 20191004
  Serious: Yes (Other)
  Sender: FDA-Public Use
  Company Number: GB-ROCHE-2346073

PATIENT
  Age: 52 Year
  Sex: Female

DRUGS (16)
  1. MITOMYCIN. [Concomitant]
     Active Substance: MITOMYCIN
     Indication: OFF LABEL USE
  2. CAPECITABINE. [Suspect]
     Active Substance: CAPECITABINE
     Indication: OFF LABEL USE
  3. VINCRISTINE [Concomitant]
     Active Substance: VINCRISTINE
     Indication: OFF LABEL USE
  4. ETOPOSIDE. [Concomitant]
     Active Substance: ETOPOSIDE
     Indication: OFF LABEL USE
  5. SOLU-MEDRONE [Concomitant]
     Active Substance: METHYLPREDNISOLONE SODIUM SUCCINATE
     Indication: OFF LABEL USE
  6. CISPLATIN. [Concomitant]
     Active Substance: CISPLATIN
     Indication: OFF LABEL USE
  7. LENALIDOMIDE [Concomitant]
     Active Substance: LENALIDOMIDE
     Indication: OFF LABEL USE
  8. MABTHERA [Suspect]
     Active Substance: RITUXIMAB
     Indication: PRODUCT USED FOR UNKNOWN INDICATION
     Route: 065
  9. CAPECITABINE. [Suspect]
     Active Substance: CAPECITABINE
     Indication: SQUAMOUS CELL CARCINOMA
     Route: 048
  10. CARBOPLATIN. [Concomitant]
     Active Substance: CARBOPLATIN
     Indication: OFF LABEL USE
  11. CYTARABINE. [Concomitant]
     Active Substance: CYTARABINE
     Indication: OFF LABEL USE
  12. CYCLOPHOSPHAMIDE. [Concomitant]
     Active Substance: CYCLOPHOSPHAMIDE
     Indication: OFF LABEL USE
  13. PREDNISONE. [Concomitant]
     Active Substance: PREDNISONE
     Indication: OFF LABEL USE
  14. MABTHERA [Suspect]
     Active Substance: RITUXIMAB
     Indication: OFF LABEL USE
  15. IFOSFAMIDE. [Concomitant]
     Active Substance: IFOSFAMIDE
     Indication: OFF LABEL USE
  16. CISPLATIN. [Concomitant]
     Active Substance: CISPLATIN
     Indication: OFF LABEL USE

REACTIONS (6)
  - Lung neoplasm [Unknown]
  - B-cell lymphoma [Unknown]
  - Diffuse large B-cell lymphoma [Unknown]
  - Intentional product use issue [Unknown]
  - Small intestinal resection [Unknown]
  - Off label use [Unknown]
